FAERS Safety Report 15530543 (Version 3)
Quarter: 2019Q3

REPORT INFORMATION
  Report Type: Report from Study
  Country: GB (occurrence: GB)
  Receive Date: 20181020
  Receipt Date: 20190906
  Transmission Date: 20191004
  Serious: Yes (Hospitalization)
  Sender: FDA-Public Use
  Company Number: GB-AMGEN-GBRSL2018144532

PATIENT
  Age: 64 Year
  Sex: Female

DRUGS (2)
  1. FLU VACCINE VII [Concomitant]
     Active Substance: INFLUENZA VIRUS VACCINE
     Dosage: UNK
  2. REPATHA [Suspect]
     Active Substance: EVOLOCUMAB
     Indication: BLOOD CHOLESTEROL INCREASED
     Dosage: UNK UNK, Q2WK
     Route: 058
     Dates: start: 20190620

REACTIONS (7)
  - Abdominal pain [Unknown]
  - Oral herpes [Unknown]
  - Dry mouth [Recovering/Resolving]
  - Dry eye [Recovering/Resolving]
  - Influenza [Recovering/Resolving]
  - Asthma [Unknown]
  - Dizziness [Unknown]

NARRATIVE: CASE EVENT DATE: 201710
